FAERS Safety Report 25640794 (Version 2)
Quarter: 2025Q3

REPORT INFORMATION
  Report Type: Spontaneous
  Country: US (occurrence: US)
  Receive Date: 20250804
  Receipt Date: 20250825
  Transmission Date: 20251020
  Serious: No
  Sender: BAYER HEALTHCARE PHARMACEUTICALS INC.
  Company Number: US-BAYER-2025A099876

PATIENT
  Age: 75 Year
  Sex: Male

DRUGS (1)
  1. KERENDIA [Suspect]
     Active Substance: FINERENONE
     Indication: Renal disorder

REACTIONS (4)
  - Lethargy [Recovering/Resolving]
  - Fatigue [Recovering/Resolving]
  - Therapy interrupted [None]
  - Product prescribing error [None]

NARRATIVE: CASE EVENT DATE: 20250101
